FAERS Safety Report 23084162 (Version 1)
Quarter: 2023Q4

REPORT INFORMATION
  Report Type: Spontaneous
  Country: US (occurrence: US)
  Receive Date: 20231019
  Receipt Date: 20231019
  Transmission Date: 20240110
  Serious: No
  Sender: FDA-Public Use
  Company Number: US-BRISTOL-MYERS SQUIBB COMPANY-2023-149051

PATIENT
  Age: 76 Year
  Sex: Female

DRUGS (1)
  1. POMALYST [Suspect]
     Active Substance: POMALIDOMIDE
     Indication: Plasmacytoma
     Dosage: FREQ:ONCE DAILY FOR 21DAYS ON AND 7 DAYS OFF
     Route: 048
     Dates: start: 202308

REACTIONS (2)
  - Full blood count decreased [Unknown]
  - Off label use [Unknown]
